FAERS Safety Report 5589270-4 (Version None)
Quarter: 2008Q1

REPORT INFORMATION
  Report Type: 
  Country: None (occurrence: None)
  Receive Date: 20080114
  Receipt Date: 20080107
  Transmission Date: 20080703
  Serious: Yes (Disabling, Other)
  Sender: FDA-Public Use
  Company Number: PHMT2007CA02293

PATIENT
  Age: 4 Year
  Sex: Female
  Weight: 14.6 kg

DRUGS (5)
  1. TEGRETOL [Suspect]
     Indication: EPILEPSY
     Dosage: 100 MG, TID
     Route: 048
  2. TEGRETOL [Suspect]
     Dosage: 350 MG, QD
     Route: 048
  3. TEGRETOL [Suspect]
     Dosage: 50 MG, TID
     Route: 048
     Dates: start: 20070130
  4. PREVACID [Concomitant]
     Dosage: 15 MG TO ASSIST WITH ABSORPTION
  5. CARBAMAZEPINE (NGX) [Suspect]
     Indication: EPILEPSY
     Dosage: GENERIC FORMULATION
     Route: 048
     Dates: start: 20071001, end: 20071101

REACTIONS (10)
  - ANTICONVULSANT DRUG LEVEL DECREASED [None]
  - BLOOD CALCIUM DECREASED [None]
  - BLOOD CHLORIDE INCREASED [None]
  - BLOOD CREATININE INCREASED [None]
  - BLOOD GLUCOSE INCREASED [None]
  - BLOOD PHOSPHORUS INCREASED [None]
  - CONVULSION [None]
  - DEVELOPMENTAL DELAY [None]
  - DRUG INEFFECTIVE [None]
  - DYSPHAGIA [None]
